FAERS Safety Report 5237339-6 (Version None)
Quarter: 2007Q1

REPORT INFORMATION
  Report Type: 
  Country: None (occurrence: None)
  Receive Date: 20070213
  Receipt Date: 20070130
  Transmission Date: 20070707
  Serious: Yes (Death)
  Sender: FDA-Public Use
  Company Number: PR-ELI_LILLY_AND_COMPANY-US200701006129

PATIENT
  Sex: Male

DRUGS (1)
  1. STRATTERA [Suspect]
     Dosage: UNK MG, UNK
     Dates: start: 20051001

REACTIONS (1)
  - DEATH [None]
